FAERS Safety Report 7668937-8 (Version None)
Quarter: 2011Q3

REPORT INFORMATION
  Report Type: 
  Country: None (occurrence: None)
  Receive Date: 20110808
  Receipt Date: 20110801
  Transmission Date: 20111222
  Serious: Yes (Death)
  Sender: FDA-Public Use
  Company Number: US-GLAXOSMITHKLINE-A0931503A

PATIENT
  Age: 65 Year
  Sex: Female

DRUGS (14)
  1. CRESTOR [Concomitant]
  2. METOPROLOL TARTRATE [Concomitant]
  3. BUPROPION HCL [Concomitant]
  4. TYKERB [Suspect]
     Indication: BREAST CANCER
     Dosage: 250MG UNKNOWN
     Route: 048
     Dates: start: 20110218
  5. ZOLOFT [Concomitant]
  6. M.V.I. [Concomitant]
  7. MAGNESIUM [Concomitant]
  8. UNSPECIFIED MEDICATION [Concomitant]
  9. ASPIRIN [Concomitant]
  10. OXYCODONE HCL [Concomitant]
  11. ZOLPIDEM [Concomitant]
  12. WELCHOL [Concomitant]
  13. CALCIUM CARBONATE [Concomitant]
  14. LYRICA [Concomitant]

REACTIONS (1)
  - BREAST CANCER [None]
